FAERS Safety Report 16582704 (Version 3)
Quarter: 2020Q1

REPORT INFORMATION
  Report Type: Spontaneous
  Country: US (occurrence: US)
  Receive Date: 20190717
  Receipt Date: 20200323
  Transmission Date: 20200409
  Serious: Yes (Hospitalization)
  Sender: FDA-Public Use
  Company Number: US-TAKEDA-2019TUS042766

PATIENT
  Sex: Male
  Weight: 104.3 kg

DRUGS (2)
  1. REVLIMID [Concomitant]
     Active Substance: LENALIDOMIDE
     Dosage: 25 MILLIGRAM
     Dates: start: 201906
  2. NINLARO [Suspect]
     Active Substance: IXAZOMIB CITRATE
     Indication: PLASMA CELL MYELOMA
     Dosage: 4 MILLIGRAM
     Route: 048
     Dates: start: 2019

REACTIONS (4)
  - Blood count abnormal [Unknown]
  - Pain in extremity [Unknown]
  - Chest pain [Unknown]
  - Taste disorder [Unknown]
